FAERS Safety Report 23606133 (Version 1)
Quarter: 2024Q1

REPORT INFORMATION
  Report Type: Spontaneous
  Country: US (occurrence: US)
  Receive Date: 20240307
  Receipt Date: 20240307
  Transmission Date: 20240410
  Serious: Yes (Hospitalization)
  Sender: FDA-Public Use
  Company Number: US-PPDUS-2024ST001486

PATIENT
  Age: 64 Year
  Sex: Female

DRUGS (1)
  1. ORSERDU [Suspect]
     Active Substance: ELACESTRANT
     Indication: Product used for unknown indication
     Route: 048
     Dates: start: 20230402

REACTIONS (4)
  - Breast disorder [Not Recovered/Not Resolved]
  - Lip swelling [Recovering/Resolving]
  - Lip blister [Not Recovered/Not Resolved]
  - Dehydration [Not Recovered/Not Resolved]
